FAERS Safety Report 4975227-0 (Version None)
Quarter: 2006Q2

REPORT INFORMATION
  Report Type: 
  Country: None (occurrence: None)
  Receive Date: 20060418
  Receipt Date: 20060407
  Transmission Date: 20061013
  Serious: Yes (Life-Threatening, Hospitalization)
  Sender: FDA-Public Use
  Company Number: CN-MERCK-0604USA01127

PATIENT
  Age: 37 Year
  Sex: Male

DRUGS (2)
  1. DECADRON [Suspect]
     Indication: PROPHYLAXIS
     Route: 048
  2. DECADRON [Suspect]
     Route: 048

REACTIONS (6)
  - ANOREXIA [None]
  - DIZZINESS [None]
  - DUODENAL ULCER [None]
  - GASTRIC HAEMORRHAGE [None]
  - GASTRIC ULCER [None]
  - HEADACHE [None]
